FAERS Safety Report 20690003 (Version 1)
Quarter: 2022Q2

REPORT INFORMATION
  Report Type: Spontaneous
  Country: US (occurrence: US)
  Receive Date: 20220408
  Receipt Date: 20220408
  Transmission Date: 20220721
  Serious: Yes (Other)
  Sender: FDA-Public Use
  Company Number: US-PFIZER INC-202200525679

PATIENT
  Age: 48 Year
  Sex: Female

DRUGS (20)
  1. PROTONIX [Suspect]
     Active Substance: PANTOPRAZOLE SODIUM
     Indication: Gastrooesophageal reflux disease
     Dosage: 40 MG, 1X/DAY
     Dates: end: 202110
  2. PANTOPRAZOLE [Suspect]
     Active Substance: PANTOPRAZOLE
     Indication: Gastrooesophageal reflux disease
     Dosage: 40 MG, 1X/DAY
  3. NEXIUM [Suspect]
     Active Substance: ESOMEPRAZOLE MAGNESIUM
     Indication: Gastrooesophageal reflux disease
     Dosage: 40 MG, 1X/DAY
     Dates: start: 199911, end: 200212
  4. NEXIUM [Suspect]
     Active Substance: ESOMEPRAZOLE MAGNESIUM
     Dosage: 40 MG, 1X/DAY
     Dates: start: 201103
  5. ESOMEPRAZOLE [Suspect]
     Active Substance: ESOMEPRAZOLE
     Indication: Gastrooesophageal reflux disease
     Dosage: 40 MG, 1X/DAY
     Dates: start: 200301, end: 201903
  6. OMEPRAZOLE [Suspect]
     Active Substance: OMEPRAZOLE
     Indication: Gastrooesophageal reflux disease
     Dosage: 20 MG, 1X/DAY
     Dates: end: 202104
  7. FLUOXETINE [Concomitant]
     Active Substance: FLUOXETINE HYDROCHLORIDE
     Indication: Anxiety
     Dosage: UNK
     Dates: start: 2011
  8. ELETRIPTAN [Concomitant]
     Active Substance: ELETRIPTAN
     Indication: Migraine
     Dosage: UNK
     Dates: start: 200708
  9. VITAMIN D2 [Concomitant]
     Active Substance: ERGOCALCIFEROL
     Indication: Vitamin D deficiency
     Dosage: 5000 IU
     Dates: start: 201703
  10. CARVEDILOL [Concomitant]
     Active Substance: CARVEDILOL
     Indication: Hypertension
     Dosage: UNK
     Dates: start: 201707
  11. ALBUTEROL [Concomitant]
     Active Substance: ALBUTEROL
     Indication: Asthma
     Dosage: UNK
     Dates: start: 2018
  12. ALBUTEROL [Concomitant]
     Active Substance: ALBUTEROL
     Indication: Vocal cord dysfunction
  13. GABAPENTIN [Concomitant]
     Active Substance: GABAPENTIN
     Indication: Cervical radiculopathy
     Dosage: UNK
     Dates: start: 202111
  14. GABAPENTIN [Concomitant]
     Active Substance: GABAPENTIN
     Indication: Lumbosacral radiculopathy
  15. CYCLOBENZAPRINE [Concomitant]
     Active Substance: CYCLOBENZAPRINE
     Indication: Muscle spasms
     Dosage: UNK
     Dates: start: 202108
  16. KETOTIFEN [Concomitant]
     Active Substance: KETOTIFEN
     Indication: Eye pruritus
     Dosage: 0.025 % SOLUTION 5 ML
     Route: 047
     Dates: start: 201809
  17. KETOTIFEN [Concomitant]
     Active Substance: KETOTIFEN
     Indication: Ocular discomfort
  18. MONTELUKAST [Concomitant]
     Active Substance: MONTELUKAST SODIUM
     Indication: Multiple allergies
     Dosage: UNK
     Dates: start: 201901
  19. ONCE-A-DAY [Concomitant]
     Indication: Routine health maintenance
     Dosage: UNK
     Dates: start: 202001
  20. RANITIDINE [Concomitant]
     Active Substance: RANITIDINE
     Dosage: UNK
     Dates: start: 201811, end: 201905

REACTIONS (7)
  - Chronic kidney disease [Not Recovered/Not Resolved]
  - Renal failure [Unknown]
  - Loss of consciousness [Unknown]
  - Major depression [Unknown]
  - Nephrolithiasis [Unknown]
  - Vomiting [Unknown]
  - Haematuria [Unknown]

NARRATIVE: CASE EVENT DATE: 20171101
